FAERS Safety Report 6453564-0 (Version None)
Quarter: 2009Q4

REPORT INFORMATION
  Report Type: 
  Country: None (occurrence: None)
  Receive Date: 20091117
  Receipt Date: 20091106
  Transmission Date: 20100525
  Serious: Yes (Hospitalization, Disabling)
  Sender: FDA-Public Use
  Company Number: OSCN-NO-0801L-0024

PATIENT
  Age: 47 Year
  Sex: Male

DRUGS (2)
  1. OMNISCAN [Suspect]
     Indication: BLOOD ALKALINE PHOSPHATASE INCREASED
     Dosage: 14 ML ; 14 ML
  2. OMNISCAN [Suspect]
     Indication: BLOOD BILIRUBIN INCREASED
     Dosage: 14 ML ; 14 ML

REACTIONS (6)
  - HAEMODIALYSIS [None]
  - LIVER TRANSPLANT [None]
  - MALIGNANT FIBROUS HISTIOCYTOMA [None]
  - METABOLIC ACIDOSIS [None]
  - NEPHROGENIC SYSTEMIC FIBROSIS [None]
  - WHEELCHAIR USER [None]
